FAERS Safety Report 9142967 (Version 1)
Quarter: 2013Q1

REPORT INFORMATION
  Report Type: Spontaneous
  Country: US (occurrence: US)
  Receive Date: 20130306
  Receipt Date: 20130306
  Transmission Date: 20140127
  Serious: No
  Sender: FDA-Public Use
  Company Number: US-PFIZER INC-2013074241

PATIENT
  Age: 52 Year
  Sex: Male
  Weight: 83.9 kg

DRUGS (7)
  1. VFEND [Suspect]
     Dosage: 400 MG, 2X/DAY
     Route: 042
     Dates: start: 20121106
  2. HYDROXYZINE [Concomitant]
     Dosage: 25 MG, 3X/DAY
  3. AMLODIPINE [Concomitant]
     Indication: HYPERTENSION
     Dosage: 10 MG, 1X/DAY
  4. PROZAC [Concomitant]
     Dosage: 20 MG, 1X/DAY
  5. PANTOPRAZOLE [Concomitant]
     Dosage: 40 MG, 1X/DAY
  6. VICODIN [Concomitant]
     Dosage: 7.5/750 MG, 3X/DAY
  7. KLOR-CON M10 [Concomitant]
     Dosage: 2X/DAY

REACTIONS (6)
  - Red blood cell count abnormal [Not Recovered/Not Resolved]
  - White blood cell count abnormal [Not Recovered/Not Resolved]
  - Blood glucose increased [Not Recovered/Not Resolved]
  - Rash [Not Recovered/Not Resolved]
  - Pruritus [Not Recovered/Not Resolved]
  - Nausea [Not Recovered/Not Resolved]
